FAERS Safety Report 12522188 (Version 2)
Quarter: 2016Q3

REPORT INFORMATION
  Report Type: Report from Study
  Country: CA (occurrence: CA)
  Receive Date: 20160701
  Receipt Date: 20160715
  Transmission Date: 20161109
  Serious: Yes (Other)
  Sender: FDA-Public Use
  Company Number: CA-JNJFOC-20160617949

PATIENT
  Sex: Female

DRUGS (1)
  1. REMICADE [Suspect]
     Active Substance: INFLIXIMAB
     Indication: CROHN^S DISEASE
     Route: 042
     Dates: start: 20150923

REACTIONS (5)
  - Abscess [Recovering/Resolving]
  - Drug level [Unknown]
  - Infection [Recovering/Resolving]
  - Pharyngitis streptococcal [Unknown]
  - Toothache [Unknown]

NARRATIVE: CASE EVENT DATE: 2016
